FAERS Safety Report 6337170-4 (Version None)
Quarter: 2009Q3

REPORT INFORMATION
  Report Type: 
  Country: None (occurrence: None)
  Receive Date: 20090831
  Receipt Date: 20090819
  Transmission Date: 20100115
  Serious: Yes (Other)
  Sender: FDA-Public Use
  Company Number: 2009AP003381

PATIENT
  Age: 47 Year
  Sex: Female

DRUGS (2)
  1. TOPIRAMATE [Suspect]
     Indication: HEADACHE
     Dosage: 50 MG;BID; PO
     Route: 048
     Dates: start: 20090529, end: 20090718
  2. FLUOXETINE [Concomitant]

REACTIONS (1)
  - SUICIDAL IDEATION [None]
